FAERS Safety Report 10338215 (Version 1)
Quarter: 2014Q3

REPORT INFORMATION
  Report Type: Spontaneous
  Country: US (occurrence: None)
  Receive Date: 20140722
  Receipt Date: 20140722
  Transmission Date: 20150326
  Serious: Yes (Hospitalization)
  Sender: FDA-Public Use
  Company Number: None

PATIENT
  Age: 50 Year
  Sex: Female
  Weight: 79.1 kg

DRUGS (1)
  1. MORPHINE [Suspect]
     Active Substance: MORPHINE
     Indication: PAIN
     Route: 048
     Dates: start: 20140517, end: 20140520

REACTIONS (4)
  - Sedation [None]
  - Mental status changes [None]
  - Confusional state [None]
  - Dyskinesia [None]

NARRATIVE: CASE EVENT DATE: 20140520
